FAERS Safety Report 12986515 (Version 1)
Quarter: 2016Q4

REPORT INFORMATION
  Report Type: Spontaneous
  Country: US (occurrence: US)
  Receive Date: 20161129
  Receipt Date: 20161129
  Transmission Date: 20170207
  Serious: Yes (Death)
  Sender: FDA-Public Use
  Company Number: None

PATIENT
  Age: 73 Year
  Sex: Female

DRUGS (3)
  1. FLUCONAZOLE. [Suspect]
     Active Substance: FLUCONAZOLE
     Indication: OESOPHAGEAL CANDIDIASIS
     Route: 042
     Dates: start: 20160316, end: 20160317
  2. ITRACONZAOLE [Suspect]
     Active Substance: ITRACONAZOLE
     Indication: OESOPHAGEAL CANDIDIASIS
     Route: 048
     Dates: start: 20160319, end: 20160323
  3. IRINOTECAN [Concomitant]
     Active Substance: IRINOTECAN

REACTIONS (7)
  - Urticaria [None]
  - Hypotension [None]
  - Atrial fibrillation [None]
  - Blister [None]
  - Stevens-Johnson syndrome [None]
  - Rash [None]
  - Acute kidney injury [None]

NARRATIVE: CASE EVENT DATE: 20160403
